FAERS Safety Report 8244697-7 (Version None)
Quarter: 2012Q1

REPORT INFORMATION
  Report Type: 
  Country: None (occurrence: None)
  Receive Date: 20120329
  Receipt Date: 20110829
  Transmission Date: 20120608
  Serious: Yes (Death)
  Sender: FDA-Public Use
  Company Number: US-MYLANLABS-2010S1022744

PATIENT
  Age: 20 Year
  Sex: Male

DRUGS (2)
  1. FENTANYL-100 [Suspect]
  2. KLONOPIN [Concomitant]

REACTIONS (1)
  - OVERDOSE [None]
